FAERS Safety Report 9609635 (Version 2)
Quarter: 2013Q4

REPORT INFORMATION
  Report Type: Spontaneous
  Country: US (occurrence: US)
  Receive Date: 20131009
  Receipt Date: 20131111
  Transmission Date: 20140711
  Serious: Yes (Other)
  Sender: FDA-Public Use
  Company Number: US-PFIZER INC-2013288158

PATIENT
  Sex: Female

DRUGS (1)
  1. LIPITOR [Suspect]
     Indication: LOW DENSITY LIPOPROTEIN INCREASED
     Dosage: UNK
     Dates: start: 2003

REACTIONS (9)
  - Muscle atrophy [Unknown]
  - Arteriosclerosis [Unknown]
  - Cardiac disorder [Unknown]
  - Condition aggravated [Unknown]
  - Dyspnoea [Unknown]
  - Malaise [Unknown]
  - Pain in extremity [Unknown]
  - Muscle disorder [Unknown]
  - Myalgia [Unknown]
